FAERS Safety Report 10440474 (Version 2)
Quarter: 2014Q4

REPORT INFORMATION
  Report Type: Report from Study
  Country: US (occurrence: US)
  Receive Date: 20140909
  Receipt Date: 20141020
  Transmission Date: 20150528
  Serious: Yes (Hospitalization)
  Sender: FDA-Public Use
  Company Number: US-BIOGENIDEC-2014BI087025

PATIENT
  Age: 70 Year
  Sex: Female

DRUGS (1)
  1. TECFIDERA [Suspect]
     Active Substance: DIMETHYL FUMARATE
     Indication: MULTIPLE SCLEROSIS
     Route: 048
     Dates: start: 201304

REACTIONS (6)
  - Nephrolithiasis [Unknown]
  - Decreased appetite [Unknown]
  - Haematuria [Unknown]
  - Flushing [Unknown]
  - Dysstasia [Unknown]
  - Hypotension [Unknown]

NARRATIVE: CASE EVENT DATE: 201306
